FAERS Safety Report 8332510-9 (Version None)
Quarter: 2012Q2

REPORT INFORMATION
  Report Type: 
  Country: None (occurrence: None)
  Receive Date: 20120503
  Receipt Date: 20120428
  Transmission Date: 20120825
  Serious: No
  Sender: FDA-Public Use
  Company Number: US-PFIZER INC-2012105438

PATIENT
  Sex: Female
  Weight: 52.154 kg

DRUGS (1)
  1. IBUPROFEN (ADVIL) [Suspect]
     Indication: PAIN
     Dosage: 200 MG, 1X/DAY
     Route: 048
     Dates: start: 20120427, end: 20120428

REACTIONS (3)
  - LIP SWELLING [None]
  - PAIN [None]
  - SWELLING FACE [None]
